FAERS Safety Report 7656026-8 (Version None)
Quarter: 2011Q3

REPORT INFORMATION
  Report Type: 
  Country: None (occurrence: None)
  Receive Date: 20110804
  Receipt Date: 20110725
  Transmission Date: 20111222
  Serious: Yes (Hospitalization, Other)
  Sender: FDA-Public Use
  Company Number: BE-JNJFOC-20110705738

PATIENT
  Sex: Female
  Weight: 109 kg

DRUGS (42)
  1. RIVAROXABAN [Suspect]
     Indication: PULMONARY EMBOLISM
     Route: 048
     Dates: start: 20110323, end: 20110607
  2. RIVAROXABAN [Suspect]
     Route: 048
     Dates: start: 20110110, end: 20110131
  3. ENOXAPARIN SODIUM [Concomitant]
     Dates: start: 20110609
  4. ACEDICON [Concomitant]
     Dates: start: 20110112, end: 20110113
  5. ULTRA K [Concomitant]
     Dates: start: 20110203, end: 20110203
  6. LITICAN [Concomitant]
     Dates: start: 20110203, end: 20110204
  7. TRAMADOL HCL [Concomitant]
     Dates: start: 20110114, end: 20110114
  8. TRAMADOL HCL [Concomitant]
     Dates: start: 20110111, end: 20110111
  9. ENOXAPARIN SODIUM [Concomitant]
     Dates: start: 20110607, end: 20110608
  10. AUGMENTIN '125' [Concomitant]
     Dates: start: 20110111, end: 20110131
  11. TUSSIPECT (COUGH AND COLD PREPARATIONS) [Concomitant]
     Dates: start: 20110208, end: 20110209
  12. LITICAN [Concomitant]
     Dates: start: 20110111, end: 20110111
  13. CONTRAMAL RETARD [Concomitant]
     Dates: start: 20110114, end: 20110118
  14. ENOXAPARIN SODIUM [Concomitant]
     Dates: start: 20110119
  15. ACEDICON [Concomitant]
     Dates: start: 20110114, end: 20110116
  16. ULTRA K [Concomitant]
     Dates: start: 20110114, end: 20110114
  17. ULTRA K [Concomitant]
     Dates: start: 20110113, end: 20110113
  18. ALLOPURINOL [Concomitant]
     Dates: start: 20110113, end: 20110117
  19. LITICAN [Concomitant]
     Dates: start: 20110205, end: 20110205
  20. TRAMADOL HCL [Concomitant]
     Dates: start: 20110112, end: 20110112
  21. ULTRA K [Concomitant]
     Dates: start: 20110204, end: 20110204
  22. TUSSIPECT (COUGH AND COLD PREPARATIONS) [Concomitant]
     Dates: start: 20110112, end: 20110118
  23. AMLODIPINE BESYLATE [Concomitant]
     Dates: start: 20110117
  24. LITICAN [Concomitant]
     Dates: start: 20110112, end: 20110112
  25. DAFALGAN CODEINE [Concomitant]
     Dates: start: 20110609, end: 20110609
  26. DAFALGAN CODEINE [Concomitant]
     Dates: start: 20110117, end: 20110117
  27. ENOXAPARIN SODIUM [Concomitant]
     Dates: start: 20110608, end: 20110608
  28. ENOXAPARIN SODIUM [Concomitant]
     Dates: start: 20110131, end: 20110131
  29. PERFUSALGAM [Concomitant]
     Dates: start: 20110202, end: 20110202
  30. TUSSIPECT (COUGH AND COLD PREPARATIONS) [Concomitant]
     Dates: start: 20110111, end: 20110111
  31. TUSSIPECT (COUGH AND COLD PREPARATIONS) [Concomitant]
     Dates: start: 20110205, end: 20110205
  32. TUSSIPECT (COUGH AND COLD PREPARATIONS) [Concomitant]
     Dates: start: 20110207, end: 20110207
  33. CONTRAMAL RETARD [Concomitant]
     Dates: start: 20110119
  34. ENOXAPARIN SODIUM [Concomitant]
     Dates: start: 20110110, end: 20110110
  35. PERFUSALGAM [Concomitant]
     Dates: start: 20110110, end: 20110117
  36. TRAMADOL HCL [Concomitant]
     Dates: start: 20110110, end: 20110111
  37. ACEDICON [Concomitant]
     Dates: start: 20110117, end: 20110117
  38. ACEDICON [Concomitant]
     Dates: start: 20110118, end: 20110118
  39. TUSSIPECT (COUGH AND COLD PREPARATIONS) [Concomitant]
     Dates: start: 20110203, end: 20110203
  40. ENOXAPARIN SODIUM [Concomitant]
     Dates: start: 20110201, end: 20110322
  41. OLMESARTAN MEDOXOMIL [Concomitant]
     Dates: start: 20101201
  42. MOVIPREP [Concomitant]
     Dates: start: 20110112, end: 20110118

REACTIONS (3)
  - PNEUMONIA NECROTISING [None]
  - RENAL FAILURE ACUTE [None]
  - VENA CAVA THROMBOSIS [None]
